FAERS Safety Report 17646305 (Version 1)
Quarter: 2020Q2

REPORT INFORMATION
  Report Type: Spontaneous
  Country: SA (occurrence: SA)
  Receive Date: 20200408
  Receipt Date: 20200408
  Transmission Date: 20200713
  Serious: Yes (Life-Threatening, Hospitalization, Other)
  Sender: FDA-Public Use
  Company Number: SA-ACCORD-178408

PATIENT
  Age: 43 Year
  Sex: Female

DRUGS (1)
  1. CISPLATIN. [Suspect]
     Active Substance: CISPLATIN
     Indication: CERVIX CARCINOMA

REACTIONS (11)
  - Hydronephrosis [Recovered/Resolved]
  - Renal tubular acidosis [Recovering/Resolving]
  - Fanconi syndrome acquired [Recovered/Resolved]
  - Escherichia infection [Recovering/Resolving]
  - Acute kidney injury [Recovered/Resolved]
  - Urosepsis [Recovering/Resolving]
  - Diarrhoea [Recovering/Resolving]
  - Dehydration [Recovering/Resolving]
  - Nephropathy [Recovered/Resolved]
  - Septic shock [Recovering/Resolving]
  - Hypovolaemia [Recovering/Resolving]
